FAERS Safety Report 7836936-9 (Version None)
Quarter: 2011Q4

REPORT INFORMATION
  Report Type: 
  Country: None (occurrence: None)
  Receive Date: 20111024
  Receipt Date: 20110225
  Transmission Date: 20120403
  Serious: No
  Sender: FDA-Public Use
  Company Number: US-ABBOTT-11P-163-0708002-00

PATIENT
  Sex: Female
  Weight: 44.946 kg

DRUGS (4)
  1. EGESTIN [Concomitant]
     Indication: HOT FLUSH
     Dates: start: 20101210
  2. EGESTIN [Concomitant]
     Indication: PROPHYLAXIS
  3. LUPRON DEPOT [Suspect]
     Indication: ENDOMETRIOSIS
     Route: 030
     Dates: start: 20101210
  4. MULTI-VITAMINS [Concomitant]
     Indication: PRODUCT USED FOR UNKNOWN INDICATION

REACTIONS (1)
  - BREAST ATROPHY [None]
